FAERS Safety Report 21059215 (Version 1)
Quarter: 2022Q3

REPORT INFORMATION
  Report Type: Spontaneous
  Country: PT (occurrence: PT)
  Receive Date: 20220708
  Receipt Date: 20220708
  Transmission Date: 20221026
  Serious: Yes (Other)
  Sender: FDA-Public Use
  Company Number: PT-AMGEN-PRTSP2022113037

PATIENT
  Weight: 2.3 kg

DRUGS (6)
  1. DARBEPOETIN ALFA [Suspect]
     Active Substance: DARBEPOETIN ALFA
     Indication: Exposure during pregnancy
     Route: 064
  2. IRON [Concomitant]
     Active Substance: IRON
     Route: 042
  3. VITAMIN B [Concomitant]
     Active Substance: VITAMIN B
  4. FOLIC ACID [Concomitant]
     Active Substance: FOLIC ACID
  5. PHOSPHORUS [Concomitant]
     Active Substance: PHOSPHORUS
     Route: 048
  6. NIFEDIPINE [Concomitant]
     Active Substance: NIFEDIPINE

REACTIONS (3)
  - Premature baby [Unknown]
  - Low birth weight baby [Unknown]
  - Exposure via breast milk [Unknown]
